FAERS Safety Report 6974985-3 (Version None)
Quarter: 2010Q3

REPORT INFORMATION
  Report Type: 
  Country: None (occurrence: None)
  Receive Date: 20100910
  Receipt Date: 20090113
  Transmission Date: 20110219
  Serious: No
  Sender: FDA-Public Use
  Company Number: US-WYE-H07705609

PATIENT
  Sex: Male
  Weight: 131.66 kg

DRUGS (2)
  1. PRISTIQ [Suspect]
     Indication: DEPRESSION
     Route: 048
     Dates: start: 20090102, end: 20090106
  2. PRISTIQ [Suspect]
     Route: 048
     Dates: start: 20090107, end: 20090111

REACTIONS (5)
  - ANXIETY [None]
  - HEADACHE [None]
  - HYPERHIDROSIS [None]
  - NERVOUSNESS [None]
  - VISION BLURRED [None]
